FAERS Safety Report 7501688-9 (Version None)
Quarter: 2011Q2

REPORT INFORMATION
  Report Type: 
  Country: None (occurrence: None)
  Receive Date: 20110525
  Receipt Date: 20110518
  Transmission Date: 20111010
  Serious: Yes (Hospitalization)
  Sender: FDA-Public Use
  Company Number: US-BRISTOL-MYERS SQUIBB COMPANY-15683907

PATIENT
  Age: 74 Year
  Sex: Male

DRUGS (31)
  1. DILTIAZEM HCL [Concomitant]
     Route: 048
  2. PLAVIX [Concomitant]
  3. LOMOTIL [Concomitant]
     Route: 048
  4. GLUCOSAMINE [Concomitant]
     Route: 048
  5. ZOFRAN [Concomitant]
     Route: 048
  6. GLYBURIDE [Concomitant]
     Route: 048
  7. DIOVAN [Concomitant]
     Route: 048
  8. M.V.I. [Concomitant]
     Dosage: 1DF:1TAB
     Route: 048
  9. BENADRYL [Concomitant]
     Route: 048
  10. PREDNISONE [Concomitant]
     Route: 048
  11. PROTONIX [Concomitant]
     Route: 048
  12. K-DUR [Concomitant]
  13. ALLOPURINOL [Concomitant]
     Route: 048
  14. HYDROCHLOROTHIAZIDE [Concomitant]
     Route: 048
  15. IMODIUM [Concomitant]
     Route: 048
  16. ACIPHEX [Concomitant]
     Dosage: PRN
     Route: 048
  17. CARVEDILOL [Concomitant]
  18. ZOFRAN [Concomitant]
     Route: 048
  19. INSULIN SLIDING SCALE [Concomitant]
  20. IPILIMUMAB [Suspect]
     Indication: MALIGNANT MELANOMA
     Route: 042
     Dates: start: 20110118, end: 20110208
  21. ACETAMINOPHEN [Concomitant]
     Dosage: 1DF: TABS
  22. HYDROCORTISONE [Concomitant]
     Dosage: CREAM 10MG AND 5MG
  23. CELEBREX [Concomitant]
     Dosage: PRN
     Route: 048
  24. ACYCLOVIR [Concomitant]
     Route: 048
  25. PREVACID [Concomitant]
     Dosage: PRN
     Route: 048
  26. COMPAZINE [Concomitant]
     Dosage: Q4-6 HRS
  27. LASIX [Concomitant]
     Route: 048
  28. VYTORIN [Concomitant]
     Dosage: 1DF:10/40MG
     Route: 048
  29. ACIPHEX [Concomitant]
  30. ASPIRIN [Concomitant]
     Route: 048
  31. CHONDROITIN [Concomitant]
     Route: 048

REACTIONS (3)
  - LARGE INTESTINE PERFORATION [None]
  - DIARRHOEA [None]
  - DEHYDRATION [None]
